FAERS Safety Report 15019667 (Version 1)
Quarter: 2018Q2

REPORT INFORMATION
  Report Type: Report from Study
  Country: None (occurrence: US)
  Receive Date: 20180618
  Receipt Date: 20180618
  Transmission Date: 20180711
  Serious: Yes (Hospitalization)
  Sender: FDA-Public Use
  Company Number: US-ABBVIE-17K-163-1860992-00

PATIENT
  Sex: Female

DRUGS (1)
  1. HUMIRA [Suspect]
     Active Substance: ADALIMUMAB
     Indication: RHEUMATOID ARTHRITIS
     Route: 058

REACTIONS (7)
  - Gout [Unknown]
  - Lung disorder [Unknown]
  - Diabetes mellitus [Recovering/Resolving]
  - Pleural effusion [Recovering/Resolving]
  - Arthritis [Unknown]
  - Rheumatoid arthritis [Unknown]
  - Amnesia [Unknown]

NARRATIVE: CASE EVENT DATE: 2016
